FAERS Safety Report 8926901 (Version 1)
Quarter: 2012Q4

REPORT INFORMATION
  Report Type: 
  Country: US (occurrence: US)
  Receive Date: 20121127
  Receipt Date: 20121127
  Transmission Date: 20130627
  Serious: Yes (Other)
  Sender: FDA-Public Use
  Company Number: CHPA2012US023696

PATIENT
  Age: 83 Year
  Sex: Female

DRUGS (3)
  1. MAALOX ANTACID/ANTIGAS RS LIQ COOL MINT [Suspect]
     Indication: PEPTIC ULCER
     Dosage: 2 tbsp at bedtime
     Route: 048
  2. MAALOX ANTACID/ANTIGAS RS LIQ COOL MINT [Suspect]
     Dosage: 2 tbsp every 2 hours for three months
     Route: 048
  3. DRUG THERAPY NOS [Suspect]
     Indication: BLOOD CHOLESTEROL

REACTIONS (9)
  - Skin cancer [Not Recovered/Not Resolved]
  - Muscular weakness [Not Recovered/Not Resolved]
  - Immune system disorder [Not Recovered/Not Resolved]
  - Hypersensitivity [Not Recovered/Not Resolved]
  - Squamous cell carcinoma of skin [Not Recovered/Not Resolved]
  - Off label use [Unknown]
  - Therapeutic response unexpected [Unknown]
  - Incorrect dose administered [None]
  - Incorrect drug administration duration [Unknown]
